FAERS Safety Report 13950368 (Version 1)
Quarter: 2017Q3

REPORT INFORMATION
  Report Type: Spontaneous
  Country: US (occurrence: US)
  Receive Date: 20170908
  Receipt Date: 20170908
  Transmission Date: 20171128
  Serious: No
  Sender: FDA-Public Use
  Company Number: US-ELI_LILLY_AND_COMPANY-US201709001232

PATIENT
  Sex: Female

DRUGS (1)
  1. FORTEO [Suspect]
     Active Substance: TERIPARATIDE
     Indication: PRODUCT USED FOR UNKNOWN INDICATION
     Dosage: UNK, UNKNOWN
     Route: 065
     Dates: start: 201210, end: 20140707

REACTIONS (9)
  - Bone pain [Unknown]
  - Dysphonia [Unknown]
  - Pain [Not Recovered/Not Resolved]
  - Swelling [Recovered/Resolved]
  - Cough [Unknown]
  - Hiatus hernia [Not Recovered/Not Resolved]
  - Rhinorrhoea [Unknown]
  - Fall [Unknown]
  - Dysgeusia [Unknown]

NARRATIVE: CASE EVENT DATE: 20170621
